FAERS Safety Report 12208716 (Version 5)
Quarter: 2016Q2

REPORT INFORMATION
  Report Type: Spontaneous
  Country: US (occurrence: US)
  Receive Date: 20160324
  Receipt Date: 20160531
  Transmission Date: 20160815
  Serious: No
  Sender: FDA-Public Use
  Company Number: US-PFIZER INC-2016128246

PATIENT
  Age: 81 Year
  Sex: Male
  Weight: 85.8 kg

DRUGS (9)
  1. LISINOPRIL. [Concomitant]
     Active Substance: LISINOPRIL
  2. LEVOTHYROXINE. [Concomitant]
     Active Substance: LEVOTHYROXINE
  3. STOOL SOFTENER [Concomitant]
     Active Substance: DOCUSATE CALCIUM
  4. ASPIRIN. [Concomitant]
     Active Substance: ASPIRIN
     Dosage: UNK
  5. SUTENT [Suspect]
     Active Substance: SUNITINIB MALATE
     Indication: RENAL CANCER STAGE IV
     Dosage: 50 MG, CYCLIC (DAILY 2 WEEKS ON / 1 WEEK OFF)
     Route: 048
     Dates: start: 20160305, end: 20160511
  6. NORCO [Concomitant]
     Active Substance: ACETAMINOPHEN\HYDROCODONE BITARTRATE
  7. FLOMAX [Concomitant]
     Active Substance: TAMSULOSIN HYDROCHLORIDE
     Dosage: UNK
  8. ZOMETA [Concomitant]
     Active Substance: ZOLEDRONIC ACID
     Dosage: UNK
  9. NAMENDA [Concomitant]
     Active Substance: MEMANTINE HYDROCHLORIDE
     Dosage: UNK

REACTIONS (13)
  - Asthenia [Unknown]
  - Weight decreased [Recovering/Resolving]
  - Vitamin D decreased [Unknown]
  - Nasal disorder [Unknown]
  - Gastrooesophageal reflux disease [Recovering/Resolving]
  - Cough [Unknown]
  - Dyspnoea [Unknown]
  - Nausea [Recovered/Resolved]
  - Arthritis [Unknown]
  - Disease progression [Unknown]
  - Renal cancer stage IV [Unknown]
  - Fatigue [Not Recovered/Not Resolved]
  - Decreased appetite [Unknown]
